FAERS Safety Report 12535539 (Version 1)
Quarter: 2016Q3

REPORT INFORMATION
  Report Type: Spontaneous
  Country: US (occurrence: None)
  Receive Date: 20160706
  Receipt Date: 20160706
  Transmission Date: 20161109
  Serious: Yes (Other)
  Sender: FDA-Public Use
  Company Number: None

PATIENT
  Age: 66 Year
  Sex: Male
  Weight: 58.97 kg

DRUGS (8)
  1. LEVOTHYROXINE. [Concomitant]
     Active Substance: LEVOTHYROXINE
  2. PROBIOTICS [Concomitant]
     Active Substance: PROBIOTICS NOS
  3. MULTIVITAMIN/MINERAL [Concomitant]
  4. LEVOFLOXACIN 500 MG TABLET AUROBINDO PHARM [Suspect]
     Active Substance: LEVOFLOXACIN
     Indication: WOUND INFECTION
     Route: 048
  5. VALIUM [Concomitant]
     Active Substance: DIAZEPAM
  6. LIOTHIRONINE [Concomitant]
  7. AMBIEN [Concomitant]
     Active Substance: ZOLPIDEM TARTRATE
  8. SODIUM TETRADECYL SULFATE [Suspect]
     Active Substance: SODIUM TETRADECYL SULFATE

REACTIONS (4)
  - Pain [None]
  - Hypoaesthesia [None]
  - Skin ulcer [None]
  - Impaired healing [None]

NARRATIVE: CASE EVENT DATE: 20160628
